FAERS Safety Report 9387269 (Version 1)
Quarter: 2013Q3

REPORT INFORMATION
  Report Type: Spontaneous
  Country: US (occurrence: US)
  Receive Date: 20130708
  Receipt Date: 20130708
  Transmission Date: 20140515
  Serious: Yes (Hospitalization)
  Sender: FDA-Public Use
  Company Number: US-JNJFOC-20130620659

PATIENT
  Age: 11 Year
  Sex: Female
  Weight: 49.9 kg

DRUGS (2)
  1. METHYLPHENIDATE HCL (WATSON) [Suspect]
     Indication: ATTENTION DEFICIT/HYPERACTIVITY DISORDER
     Dosage: 1 TABLET AT 9 AM
     Route: 048
     Dates: start: 2011, end: 20130602
  2. METHYLPHENIDATE HCL (WATSON) [Suspect]
     Indication: ATTENTION DEFICIT/HYPERACTIVITY DISORDER
     Route: 048
     Dates: start: 20130602

REACTIONS (5)
  - Hospitalisation [Unknown]
  - Drug level below therapeutic [Unknown]
  - Incorrect dose administered [Unknown]
  - Drug ineffective [Not Recovered/Not Resolved]
  - Drug dose omission [Unknown]
